FAERS Safety Report 4286325-1 (Version None)
Quarter: 2004Q1

REPORT INFORMATION
  Report Type: 
  Country: None (occurrence: None)
  Receive Date: 20040121
  Receipt Date: 20030310
  Transmission Date: 20041129
  Serious: Yes (Hospitalization)
  Sender: FDA-Public Use
  Company Number: A03200300499

PATIENT
  Age: 71 Year
  Sex: Female
  Weight: 68.0396 kg

DRUGS (10)
  1. PLAVIX [Suspect]
     Indication: CARDIAC OPERATION
     Dosage: 75 MG QD - ORAL
     Route: 048
     Dates: start: 19990101
  2. PLAVIX [Suspect]
     Indication: CARDIOVASCULAR DISORDER
     Dosage: 75 MG QD - ORAL
     Route: 048
     Dates: start: 19990101
  3. ATORVASTATIN [Concomitant]
  4. QUINAPRIL HYDROCHLORIDE [Concomitant]
  5. FUROSEMIDE [Concomitant]
  6. IRON [Concomitant]
  7. POTASSIUM CHLORIDE [Concomitant]
  8. CALCIUM [Concomitant]
  9. VITAMIN C [Concomitant]
  10. HUMULIN 70/30 [Concomitant]

REACTIONS (2)
  - ANAEMIA [None]
  - FATIGUE [None]
